FAERS Safety Report 4335916-8 (Version None)
Quarter: 2004Q2

REPORT INFORMATION
  Report Type: 
  Country: None (occurrence: None)
  Receive Date: 20040406
  Receipt Date: 20040331
  Transmission Date: 20050107
  Serious: Yes (Other)
  Sender: FDA-Public Use
  Company Number: STA-AE-04-MTX-137

PATIENT
  Age: 48 Year
  Sex: Female

DRUGS (2)
  1. NOVATREX (METHOTREXATE, THERAPY) [Suspect]
     Indication: RHEUMATOID ARTHRITIS
     Dosage: 10 MG 1 X PER 1WK, ORAL
     Route: 048
     Dates: start: 20030901
  2. ENBREL [Concomitant]

REACTIONS (2)
  - BREAST CANCER [None]
  - DRUG INEFFECTIVE [None]
